FAERS Safety Report 9463200 (Version 1)
Quarter: 2013Q3

REPORT INFORMATION
  Report Type: Spontaneous
  Country: JP (occurrence: JP)
  Receive Date: 20130818
  Receipt Date: 20130818
  Transmission Date: 20140515
  Serious: Yes (Death, Other)
  Sender: FDA-Public Use
  Company Number: PHHY2013JP087628

PATIENT
  Age: 71 Year
  Sex: Male

DRUGS (3)
  1. DOCETAXEL [Suspect]
     Indication: GASTRIC CANCER
     Dosage: 60 MG/M2 ON DAY 1
     Route: 041
  2. 5-FLUOROURACIL [Suspect]
     Indication: GASTRIC CANCER
     Dosage: 370 MG/M2 ON DAYS 1-5
  3. DEXAMETHASONE [Concomitant]
     Indication: PROPHYLAXIS
     Dosage: 6 MG
     Route: 042

REACTIONS (3)
  - Hepatic function abnormal [Fatal]
  - General physical health deterioration [Fatal]
  - Neutropenia [Unknown]
